FAERS Safety Report 7329792-9 (Version None)
Quarter: 2011Q1

REPORT INFORMATION
  Report Type: 
  Country: None (occurrence: None)
  Receive Date: 20110303
  Receipt Date: 20110221
  Transmission Date: 20110831
  Serious: Yes (Death, Other)
  Sender: FDA-Public Use
  Company Number: US-TEVA-268499USA

PATIENT
  Age: 38 Year
  Sex: Male

DRUGS (3)
  1. IRINOTECAN [Concomitant]
     Dosage: 2-6 WEEK CYCLES
  2. DEXAMETHASONE SODIUM PHOSPHATE [Suspect]
     Indication: BRAIN NEOPLASM
     Dosage: CUM DOSE 1948 MG
  3. BEVACIZUMAB [Suspect]
     Indication: BRAIN NEOPLASM
     Dosage: 2 WEEKLY

REACTIONS (6)
  - CUSHINGOID [None]
  - ACNE [None]
  - DEATH [None]
  - SKIN STRIAE [None]
  - SKIN ULCER [None]
  - MYOPATHY [None]
